FAERS Safety Report 7631190-5 (Version None)
Quarter: 2011Q3

REPORT INFORMATION
  Report Type: 
  Country: None (occurrence: None)
  Receive Date: 20110725
  Receipt Date: 20110715
  Transmission Date: 20111222
  Serious: Yes (Other)
  Sender: FDA-Public Use
  Company Number: US-JNJFOC-20110707412

PATIENT
  Sex: Male

DRUGS (4)
  1. TOPAMAX [Suspect]
     Indication: PAIN IN EXTREMITY
     Route: 048
  2. OXYCODON [Concomitant]
     Indication: PROCEDURAL PAIN
     Route: 065
  3. NEURONTIN [Suspect]
     Indication: PAIN IN EXTREMITY
  4. TYLENOL-500 [Concomitant]
     Indication: PROCEDURAL PAIN

REACTIONS (2)
  - CARDIAC PACEMAKER INSERTION [None]
  - DRUG INEFFECTIVE [None]
